FAERS Safety Report 4679381-X (Version None)
Quarter: 2005Q2

REPORT INFORMATION
  Report Type: 
  Country: None (occurrence: None)
  Receive Date: 20050602
  Receipt Date: 20050520
  Transmission Date: 20051028
  Serious: Yes (Hospitalization)
  Sender: FDA-Public Use
  Company Number: RU-GLAXOSMITHKLINE-B0382380A

PATIENT
  Age: 29 Year
  Sex: Male

DRUGS (2)
  1. AUGMENTIN '125' [Suspect]
     Indication: PNEUMONIA
     Dosage: 3.6G PER DAY
     Route: 042
     Dates: start: 20050331, end: 20050403
  2. TAVANIC [Concomitant]

REACTIONS (4)
  - LUNG INFILTRATION [None]
  - POISONING [None]
  - PYREXIA [None]
  - THERAPY NON-RESPONDER [None]
